FAERS Safety Report 9106006 (Version 2)
Quarter: 2013Q2

REPORT INFORMATION
  Report Type: Spontaneous
  Country: US (occurrence: US)
  Receive Date: 20130220
  Receipt Date: 20130405
  Transmission Date: 20140414
  Serious: Yes (Hospitalization)
  Sender: FDA-Public Use
  Company Number: US-PFIZER INC-2012197007

PATIENT
  Sex: Male

DRUGS (4)
  1. LIPITOR [Suspect]
     Dosage: 40 MG, UNK
  2. NEURONTIN [Suspect]
     Dosage: 300 MG, UNK
  3. NITROSTAT [Suspect]
     Dosage: 0.4 MG, UNK
  4. PROCARDIA XL [Suspect]
     Dosage: 60 MG, UNK

REACTIONS (1)
  - Aortic aneurysm [Unknown]
